FAERS Safety Report 4381221-3 (Version None)
Quarter: 2004Q2

REPORT INFORMATION
  Report Type: 
  Country: None (occurrence: None)
  Receive Date: 20040617
  Receipt Date: 20040617
  Transmission Date: 20050107
  Serious: Yes (Hospitalization)
  Sender: FDA-Public Use
  Company Number: None

PATIENT
  Sex: Male
  Weight: 83.1 kg

DRUGS (7)
  1. IRINOTECAN [Suspect]
     Indication: GLIOBLASTOMA MULTIFORME
     Dosage: 650 MG IV DAYS 1,8,22,29 OF 6 WEEK CYCLE
     Route: 042
     Dates: start: 20040415
  2. IRINOTECAN [Suspect]
     Indication: GLIOBLASTOMA MULTIFORME
     Dosage: 650 MG IV DAYS 1,8,22,29 OF 6 WEEK CYCLE
     Route: 042
     Dates: start: 20040506
  3. IRINOTECAN [Suspect]
     Indication: GLIOBLASTOMA MULTIFORME
     Dosage: 650 MG IV DAYS 1,8,22,29 OF 6 WEEK CYCLE
     Route: 042
     Dates: start: 20040513
  4. TAMOZOLOMIDE [Suspect]
     Indication: GLIOBLASTOMA MULTIFORME
     Dosage: 400 MG PO QD 4-15-19/2004
     Route: 048
     Dates: start: 20040415, end: 20040419
  5. AUGMENTIN [Concomitant]
  6. DILANTIN [Concomitant]
  7. ALLEGRA [Concomitant]

REACTIONS (5)
  - CHILLS [None]
  - MASTOIDITIS [None]
  - OTORRHOEA [None]
  - SIMPLE PARTIAL SEIZURES [None]
  - SOMNOLENCE [None]
